FAERS Safety Report 25942741 (Version 1)
Quarter: 2025Q4

REPORT INFORMATION
  Report Type: Spontaneous
  Country: EU (occurrence: EU)
  Receive Date: 20251021
  Receipt Date: 20251021
  Transmission Date: 20260118
  Serious: Yes (Life-Threatening, Hospitalization, Disabling, Other)
  Sender: AUROBINDO
  Company Number: EU-MLMSERVICE-20251002-PI665334-00043-1

PATIENT
  Age: 75 Year
  Sex: Male

DRUGS (1)
  1. ALLOPURINOL [Suspect]
     Active Substance: ALLOPURINOL
     Indication: Product used for unknown indication
     Dosage: UNK
     Route: 048

REACTIONS (11)
  - SJS-TEN overlap [Not Recovered/Not Resolved]
  - Visual acuity reduced [Not Recovered/Not Resolved]
  - Conjunctival scar [Not Recovered/Not Resolved]
  - Ocular surface disease [Not Recovered/Not Resolved]
  - Entropion [Not Recovered/Not Resolved]
  - Corneal perforation [Not Recovered/Not Resolved]
  - Symblepharon [Not Recovered/Not Resolved]
  - Corneal neovascularisation [Not Recovered/Not Resolved]
  - Conjunctivitis [Not Recovered/Not Resolved]
  - Meibomian gland dysfunction [Not Recovered/Not Resolved]
  - Iridocele [Not Recovered/Not Resolved]
